FAERS Safety Report 5423287-5 (Version None)
Quarter: 2007Q3

REPORT INFORMATION
  Report Type: 
  Country: None (occurrence: None)
  Receive Date: 20070823
  Receipt Date: 20070815
  Transmission Date: 20080115
  Serious: Yes (Other)
  Sender: FDA-Public Use
  Company Number: PHEH2007US11200

PATIENT

DRUGS (1)
  1. LESCOL XL [Suspect]

REACTIONS (2)
  - COLECTOMY TOTAL [None]
  - MEDICATION RESIDUE [None]
